FAERS Safety Report 19504880 (Version 7)
Quarter: 2022Q2

REPORT INFORMATION
  Report Type: Report from Study
  Country: CA (occurrence: CA)
  Receive Date: 20210708
  Receipt Date: 20220630
  Transmission Date: 20220720
  Serious: Yes (Other)
  Sender: FDA-Public Use
  Company Number: CA-SA-2021SA110082

PATIENT
  Sex: Male

DRUGS (22)
  1. PRALUENT [Suspect]
     Active Substance: ALIROCUMAB
     Indication: Type IIa hyperlipidaemia
     Dosage: 300 MG, Q4W
     Route: 058
     Dates: start: 20180125, end: 20190307
  2. PRALUENT [Suspect]
     Active Substance: ALIROCUMAB
     Indication: Arteriosclerosis
     Dosage: 300 MG, QOW
     Route: 058
     Dates: start: 20190404, end: 2020
  3. PRALUENT [Suspect]
     Active Substance: ALIROCUMAB
     Dosage: 150 MG, QOW
     Route: 058
     Dates: start: 2019
  4. PRALUENT [Suspect]
     Active Substance: ALIROCUMAB
     Dosage: 150 MG, QOW
     Route: 058
     Dates: start: 2020
  5. PRALUENT [Suspect]
     Active Substance: ALIROCUMAB
     Dosage: UNK
     Dates: start: 20211001
  6. FLUVASTATIN [Concomitant]
     Active Substance: FLUVASTATIN SODIUM
     Indication: Blood cholesterol abnormal
     Dosage: 20 MG, QD
  7. FLUVASTATIN [Concomitant]
     Active Substance: FLUVASTATIN SODIUM
     Indication: Blood cholesterol abnormal
  8. CLOPIDOGREL [Concomitant]
     Active Substance: CLOPIDOGREL BISULFATE
     Indication: Product used for unknown indication
     Dosage: 75 MG
  9. DEXILANT [Concomitant]
     Active Substance: DEXLANSOPRAZOLE
     Indication: Product used for unknown indication
     Dosage: 60 MG
     Dates: start: 20190531
  10. AMLODIPINE [Concomitant]
     Active Substance: AMLODIPINE BESYLATE
     Indication: Product used for unknown indication
     Dosage: UNK
  11. TYLENOL ARTHRITIS PAIN [Concomitant]
     Active Substance: ACETAMINOPHEN
     Indication: Product used for unknown indication
     Dosage: UNK
  12. METFORMIN [Concomitant]
     Active Substance: METFORMIN HYDROCHLORIDE
     Indication: Product used for unknown indication
     Dosage: 600MG
  13. MAGNESIUM [Concomitant]
     Active Substance: MAGNESIUM
     Indication: Product used for unknown indication
     Dosage: UNK
  14. MAVIK [Concomitant]
     Active Substance: TRANDOLAPRIL
     Indication: Product used for unknown indication
     Dosage: UNK
  15. SIMVASTATIN [Concomitant]
     Active Substance: SIMVASTATIN
     Indication: Blood cholesterol abnormal
     Dosage: 5 MG
  16. SIMVASTATIN [Concomitant]
     Active Substance: SIMVASTATIN
     Indication: Blood cholesterol abnormal
  17. BISOPROLOL [Concomitant]
     Active Substance: BISOPROLOL
     Indication: Product used for unknown indication
     Dosage: UNK
  18. RESTORIL [Concomitant]
     Active Substance: TEMAZEPAM
     Dosage: UNK
  19. NITROGLYCERIN [Concomitant]
     Active Substance: NITROGLYCERIN
     Dosage: UNK
  20. PANTOPRAZOLE SODIUM [Concomitant]
     Active Substance: PANTOPRAZOLE SODIUM
     Dosage: UNK
     Dates: start: 20190531
  21. RESTORIL [Concomitant]
     Active Substance: TEMAZEPAM
     Dosage: UNK
  22. NITRO F [Concomitant]
     Dosage: 625MG

REACTIONS (7)
  - Cataract [Recovering/Resolving]
  - Post procedural haemorrhage [Recovering/Resolving]
  - Product use issue [Unknown]
  - Urinary tract infection [Recovered/Resolved]
  - Eye operation [Not Recovered/Not Resolved]
  - Product use issue [Unknown]
  - Off label use [Unknown]

NARRATIVE: CASE EVENT DATE: 20190404
